FAERS Safety Report 22383662 (Version 1)
Quarter: 2023Q2

REPORT INFORMATION
  Report Type: Spontaneous
  Country: US (occurrence: None)
  Receive Date: 20230526
  Receipt Date: 20230526
  Transmission Date: 20230721
  Serious: Yes (Hospitalization)
  Sender: FDA-Public Use
  Company Number: None

PATIENT
  Sex: Female

DRUGS (18)
  1. LENALIDOMIDE [Suspect]
     Active Substance: LENALIDOMIDE
     Indication: Plasma cell myeloma
     Dosage: OTHER QUANTITY : 1C;?FREQUENCY : DAILY;?
     Route: 048
  2. ACYCLOVIR (SYSTEMIC) [Concomitant]
  3. AMLODIPINE BESYLATE [Concomitant]
     Active Substance: AMLODIPINE BESYLATE
  4. ASPIRIN [Concomitant]
     Active Substance: ASPIRIN
  5. ATORVASTATIN [Concomitant]
     Active Substance: ATORVASTATIN
  6. DEXAMETHASONE (SYSTEMIC) [Concomitant]
  7. GABAPENTIN [Concomitant]
     Active Substance: GABAPENTIN
  8. IRBESARTAN AND HYDROCHLORCHLOROTHIAZIDE [Concomitant]
  9. LACTOBACILLUS ACIDOPHILUS [Concomitant]
     Active Substance: LACTOBACILLUS ACIDOPHILUS
  10. LENALIDOMIDE [Concomitant]
     Active Substance: LENALIDOMIDE
  11. METOPROLOL [Concomitant]
     Active Substance: METOPROLOL
  12. MULTIVITAMINS/MINERALS (WITH ADEK, FOLATE, IRON) [Concomitant]
  13. OXYCODONE [Concomitant]
     Active Substance: OXYCODONE
  14. PIOGLITAZONE [Concomitant]
     Active Substance: PIOGLITAZONE
  15. TRULICITY [Concomitant]
     Active Substance: DULAGLUTIDE
  16. TYLENOL 8 HR ARTHRITIS PAIN [Concomitant]
     Active Substance: ACETAMINOPHEN
  17. ALBUTEROL [Concomitant]
     Active Substance: ALBUTEROL
  18. LASIX [Concomitant]
     Active Substance: FUROSEMIDE

REACTIONS (10)
  - Dizziness [None]
  - Vomiting [None]
  - Dehydration [None]
  - Neuralgia [None]
  - Deafness [None]
  - Thrombosis [None]
  - Balance disorder [None]
  - Haematological infection [None]
  - Oral pain [None]
  - Oropharyngeal pain [None]
